FAERS Safety Report 7886781-3 (Version None)
Quarter: 2011Q4

REPORT INFORMATION
  Report Type: 
  Country: None (occurrence: None)
  Receive Date: 20111102
  Receipt Date: 20110711
  Transmission Date: 20120403
  Serious: No
  Sender: FDA-Public Use
  Company Number: US-AMGEN-USASP2011035067

PATIENT
  Age: 32 Year
  Sex: Female
  Weight: 43.084 kg

DRUGS (1)
  1. ENBREL [Suspect]
     Dosage: 50 MG, 2 TIMES/WK
     Dates: start: 20110621

REACTIONS (3)
  - IRRITABILITY [None]
  - FATIGUE [None]
  - INJECTION SITE REACTION [None]
